FAERS Safety Report 4392395-2 (Version None)
Quarter: 2004Q3

REPORT INFORMATION
  Report Type: 
  Country: None (occurrence: None)
  Receive Date: 20040702
  Receipt Date: 20040308
  Transmission Date: 20050211
  Serious: Yes (Other)
  Sender: FDA-Public Use
  Company Number: 2004UW04360

PATIENT
  Age: 63 Year
  Sex: Female
  Weight: 83.9154 kg

DRUGS (11)
  1. CRESTOR [Suspect]
     Dosage: 10 MG PO
     Route: 048
     Dates: start: 20040101
  2. NORVASC [Concomitant]
  3. METFORMIN [Concomitant]
  4. AVANDIA [Concomitant]
  5. AVAPRO [Concomitant]
  6. DARVOCET-N 100 [Concomitant]
  7. DIAMOX [Concomitant]
  8. CLARINEX [Concomitant]
  9. ASPIRIN [Concomitant]
  10. STARLIX [Concomitant]
  11. COUMADIN [Concomitant]

REACTIONS (3)
  - ANOREXIA [None]
  - ASTHENIA [None]
  - FATIGUE [None]
